FAERS Safety Report 6377508-5 (Version None)
Quarter: 2009Q3

REPORT INFORMATION
  Report Type: 
  Country: None (occurrence: None)
  Receive Date: 20090925
  Receipt Date: 20090916
  Transmission Date: 20100115
  Serious: Yes (Other)
  Sender: FDA-Public Use
  Company Number: US-ABBOTT-09P-163-0597853-00

PATIENT
  Sex: Female
  Weight: 57.658 kg

DRUGS (2)
  1. SYNTHROID [Suspect]
     Indication: THYROIDECTOMY
     Dates: start: 20071201
  2. LANOXIN [Concomitant]
     Indication: ATRIAL FIBRILLATION
     Dates: start: 20080101

REACTIONS (4)
  - COLON CANCER METASTATIC [None]
  - HEART RATE DECREASED [None]
  - HYPOTENSION [None]
  - LYMPHADENOPATHY [None]
